FAERS Safety Report 7573662-8 (Version None)
Quarter: 2011Q2

REPORT INFORMATION
  Report Type: 
  Country: None (occurrence: None)
  Receive Date: 20110627
  Receipt Date: 20110615
  Transmission Date: 20111010
  Serious: Yes (Other)
  Sender: FDA-Public Use
  Company Number: BR-SANOFI-AVENTIS-2011SA038485

PATIENT
  Age: 77 Year
  Sex: Female
  Weight: 47 kg

DRUGS (8)
  1. SIMVASTATIN [Concomitant]
     Dosage: BEGAN TREATMENT THREE YEARS AGO
     Route: 048
  2. LOSARTAN POTASSIUM [Concomitant]
     Indication: BLOOD PRESSURE ABNORMAL
     Dosage: BEGAN TREATMENT THREE YEARS AGO
     Route: 048
  3. BENERVA [Concomitant]
     Indication: VITAMIN SUPPLEMENTATION
     Route: 048
  4. ASPIRIN [Concomitant]
     Indication: ANTICOAGULANT THERAPY
     Route: 048
  5. LANTUS [Suspect]
     Dosage: BEGAN TREATMENT ABOUT TWO YEARS AGO
     Route: 058
  6. BISOPROLOL FUMARATE [Concomitant]
     Dosage: BEGAN TREATMENT THREE YEARS AGO
     Route: 048
  7. DAFLON [Concomitant]
     Route: 048
  8. AUTOPEN 24 [Suspect]

REACTIONS (5)
  - URINARY TRACT INFECTION [None]
  - CEREBRAL ISCHAEMIA [None]
  - MEMORY IMPAIRMENT [None]
  - CEREBRAL ATROPHY [None]
  - HYPERGLYCAEMIA [None]
